FAERS Safety Report 5286085-1 (Version None)
Quarter: 2007Q1

REPORT INFORMATION
  Report Type: 
  Country: None (occurrence: None)
  Receive Date: 20070329
  Receipt Date: 20070319
  Transmission Date: 20070707
  Serious: Yes (Death)
  Sender: FDA-Public Use
  Company Number: S07-USA-00274-01

PATIENT
  Age: 58 Year
  Sex: Male
  Weight: 74.8435 kg

DRUGS (1)
  1. LEXAPRO [Suspect]
     Dates: start: 20041226, end: 20050114

REACTIONS (8)
  - ARTERIOSCLEROSIS [None]
  - CHEST INJURY [None]
  - COMPLETED SUICIDE [None]
  - EMPHYSEMA [None]
  - GUN SHOT WOUND [None]
  - HEPATIC STEATOSIS [None]
  - STRESS AT WORK [None]
  - WEIGHT DECREASED [None]
